FAERS Safety Report 6221730-5 (Version None)
Quarter: 2009Q2

REPORT INFORMATION
  Report Type: 
  Country: None (occurrence: None)
  Receive Date: 20090608
  Receipt Date: 20090527
  Transmission Date: 20091009
  Serious: Yes (Hospitalization)
  Sender: FDA-Public Use
  Company Number: 2009AP002014

PATIENT
  Age: 70 Year
  Sex: Male

DRUGS (4)
  1. HALOPERIDOL [Suspect]
     Indication: AGITATION
     Dosage: 2 MG; Q4H
  2. VALPROATE SODIUM [Concomitant]
  3. AMLODIPINE [Concomitant]
  4. LANSOPRAZOLE [Concomitant]

REACTIONS (5)
  - HYPERTENSION [None]
  - METABOLIC ACIDOSIS [None]
  - NEUROLEPTIC MALIGNANT SYNDROME [None]
  - RENAL FAILURE ACUTE [None]
  - RHABDOMYOLYSIS [None]
